FAERS Safety Report 6530013-5 (Version None)
Quarter: 2010Q1

REPORT INFORMATION
  Report Type: 
  Country: None (occurrence: None)
  Receive Date: 20100107
  Receipt Date: 20091224
  Transmission Date: 20100710
  Serious: Yes (Hospitalization)
  Sender: FDA-Public Use
  Company Number: GB-MYLANLABS-2010S1000020

PATIENT
  Age: 49 Year
  Sex: Female

DRUGS (3)
  1. LANSOPRAZOLE [Suspect]
     Indication: GASTRITIS
     Route: 048
     Dates: start: 20090811, end: 20090912
  2. BECLOMETASONE DIPROPIONATE [Concomitant]
     Indication: DRUG USE FOR UNKNOWN INDICATION
     Route: 065
  3. ALBUTEROL [Concomitant]
     Indication: DRUG USE FOR UNKNOWN INDICATION
     Route: 065

REACTIONS (7)
  - AFFECT LABILITY [None]
  - DELUSION [None]
  - DELUSION OF GRANDEUR [None]
  - FLIGHT OF IDEAS [None]
  - HYPOMANIA [None]
  - PRESSURE OF SPEECH [None]
  - VERBAL ABUSE [None]
